FAERS Safety Report 5903325-3 (Version None)
Quarter: 2008Q3

REPORT INFORMATION
  Report Type: 
  Country: None (occurrence: None)
  Receive Date: 20080930
  Receipt Date: 20080923
  Transmission Date: 20090109
  Serious: Yes (Other)
  Sender: FDA-Public Use
  Company Number: D0058866A

PATIENT
  Sex: Female
  Weight: 1.7 kg

DRUGS (3)
  1. LAMICTAL [Suspect]
     Dosage: 200MG PER DAY
     Dates: start: 20060101, end: 20060809
  2. TREVILOR [Concomitant]
     Indication: DEPRESSION
     Dosage: 225MG PER DAY
     Dates: start: 20060101, end: 20060822
  3. TAXILAN [Concomitant]
     Route: 065

REACTIONS (4)
  - ACCESSORY KIDNEY [None]
  - DRUG EXPOSURE DURING PREGNANCY [None]
  - ILL-DEFINED DISORDER [None]
  - URINARY TRACT INFECTION [None]
